FAERS Safety Report 9778633 (Version 2)
Quarter: 2013Q4

REPORT INFORMATION
  Report Type: Spontaneous
  Country: US (occurrence: US)
  Receive Date: 20131223
  Receipt Date: 20131227
  Transmission Date: 20140711
  Serious: Yes (Other)
  Sender: FDA-Public Use
  Company Number: US-DRREDDYS-USA/USA/13/0036545

PATIENT
  Age: 15 Year
  Sex: Male

DRUGS (1)
  1. ZENATANE [Suspect]
     Indication: ACNE
     Route: 048

REACTIONS (1)
  - Depressed mood [Recovering/Resolving]
